FAERS Safety Report 7237486-3 (Version None)
Quarter: 2011Q1

REPORT INFORMATION
  Report Type: 
  Country: None (occurrence: None)
  Receive Date: 20110121
  Receipt Date: 20110111
  Transmission Date: 20110831
  Serious: Yes (Hospitalization, Other)
  Sender: FDA-Public Use
  Company Number: IN-JNJFOC-20110103844

PATIENT
  Age: 22 Year
  Sex: Male

DRUGS (3)
  1. RISPERIDONE [Suspect]
     Indication: PSYCHOTIC DISORDER
     Route: 065
  2. RISPERIDONE [Suspect]
     Route: 065
  3. HALOPERIDOL [Suspect]
     Indication: ILL-DEFINED DISORDER
     Route: 065

REACTIONS (7)
  - URINARY RETENTION [None]
  - DYSTONIA [None]
  - PSYCHOTIC DISORDER [None]
  - EXTRAPYRAMIDAL DISORDER [None]
  - HEPATIC ENZYME ABNORMAL [None]
  - ALBUMINURIA [None]
  - NEUROLEPTIC MALIGNANT SYNDROME [None]
